FAERS Safety Report 21870498 (Version 1)
Quarter: 2023Q1

REPORT INFORMATION
  Report Type: Spontaneous
  Country: US (occurrence: None)
  Receive Date: 20230113
  Receipt Date: 20230113
  Transmission Date: 20230417
  Serious: No
  Sender: FDA-Public Use
  Company Number: None

PATIENT
  Age: 66 Year
  Sex: Male

DRUGS (1)
  1. FORTEO [Suspect]
     Active Substance: TERIPARATIDE
     Dosage: OTHER STRENGTH : 600MCG/2.4ML;?OTHER QUANTITY : 20MCG;?FREQUENCY : TWICE A DAY;?
     Route: 058
     Dates: start: 20220113

REACTIONS (2)
  - Lower gastrointestinal haemorrhage [None]
  - Diverticulitis [None]

NARRATIVE: CASE EVENT DATE: 20221119
